FAERS Safety Report 14700742 (Version 1)
Quarter: 2018Q1

REPORT INFORMATION
  Report Type: Report from Study
  Country: US (occurrence: US)
  Receive Date: 20180330
  Receipt Date: 20180330
  Transmission Date: 20180509
  Serious: No
  Sender: FDA-Public Use
  Company Number: PHEH2018US012195

PATIENT
  Sex: Male
  Weight: 42.8 kg

DRUGS (1)
  1. OMNITROPE [Suspect]
     Active Substance: SOMATROPIN
     Indication: HYPOPITUITARISM
     Dosage: 1.6 MG, QD
     Route: 058
     Dates: start: 20180115

REACTIONS (3)
  - Arthralgia [Unknown]
  - Thirst [Unknown]
  - Pollakiuria [Unknown]
